FAERS Safety Report 5571008-8 (Version None)
Quarter: 2007Q4

REPORT INFORMATION
  Report Type: 
  Country: None (occurrence: None)
  Receive Date: 20071219
  Receipt Date: 20071204
  Transmission Date: 20080405
  Serious: No
  Sender: FDA-Public Use
  Company Number: US021878

PATIENT
  Age: 18 Year
  Sex: Male

DRUGS (3)
  1. FENTORA [Suspect]
     Indication: NERVOUS SYSTEM DISORDER
     Dosage: 800 UG BUCCAL
     Route: 002
  2. FENTORA [Suspect]
     Indication: PAIN
     Dosage: 800 UG BUCCAL
     Route: 002
  3. AVINZA [Concomitant]

REACTIONS (2)
  - DRUG EFFECT DECREASED [None]
  - PHARMACEUTICAL PRODUCT COMPLAINT [None]
